FAERS Safety Report 25678070 (Version 1)
Quarter: 2025Q3

REPORT INFORMATION
  Report Type: Spontaneous
  Country: CN (occurrence: CN)
  Receive Date: 20250813
  Receipt Date: 20250813
  Transmission Date: 20251020
  Serious: Yes (Other)
  Sender: BRACCO
  Company Number: CN-BRACCO-2025CN05511

PATIENT
  Age: 58 Year
  Sex: Male

DRUGS (1)
  1. IOMEPROL [Suspect]
     Active Substance: IOMEPROL
     Indication: Computerised tomogram thorax
     Route: 042
     Dates: start: 20250805, end: 20250805

REACTIONS (4)
  - Pruritus [Recovering/Resolving]
  - Urticaria [Recovering/Resolving]
  - Blister [Recovering/Resolving]
  - Dysphoria [Recovering/Resolving]

NARRATIVE: CASE EVENT DATE: 20250805
